FAERS Safety Report 16699778 (Version 2)
Quarter: 2019Q3

REPORT INFORMATION
  Report Type: Spontaneous
  Country: US (occurrence: US)
  Receive Date: 20190813
  Receipt Date: 20190814
  Transmission Date: 20191004
  Serious: No
  Sender: FDA-Public Use
  Company Number: US-009507513-1908USA005126

PATIENT
  Age: 24 Year
  Sex: Female

DRUGS (1)
  1. NEXPLANON [Suspect]
     Active Substance: ETONOGESTREL
     Dosage: 68 MILLIGRAM, ONCE
     Route: 059
     Dates: start: 20190808

REACTIONS (1)
  - Implant site bruising [Not Recovered/Not Resolved]

NARRATIVE: CASE EVENT DATE: 20190809
